FAERS Safety Report 9348051 (Version 1)
Quarter: 2013Q2

REPORT INFORMATION
  Report Type: Spontaneous
  Country: CA (occurrence: CA)
  Receive Date: 20130614
  Receipt Date: 20130614
  Transmission Date: 20140414
  Serious: Yes (Other)
  Sender: FDA-Public Use
  Company Number: CA-TEVA-412112USA

PATIENT
  Age: 79 Year
  Sex: Male
  Weight: 98.52 kg

DRUGS (1)
  1. CLOPIDOGREL [Suspect]
     Route: 065

REACTIONS (4)
  - Eye pruritus [Recovered/Resolved]
  - Product substitution issue [Recovered/Resolved]
  - Pruritus [Recovered/Resolved]
  - Rhinorrhoea [Recovered/Resolved]
